FAERS Safety Report 9160166 (Version 1)
Quarter: 2013Q1

REPORT INFORMATION
  Report Type: Spontaneous
  Country: US (occurrence: US)
  Receive Date: 20130313
  Receipt Date: 20130313
  Transmission Date: 20140127
  Serious: No
  Sender: FDA-Public Use
  Company Number: US-JHP PHARMACEUTICALS, LLC-JHP201300015

PATIENT
  Sex: Male

DRUGS (2)
  1. KETALAR [Suspect]
     Indication: PAIN
     Dosage: 30 MG, SINGLE
     Route: 042
     Dates: start: 20130105, end: 20130105
  2. TORADOL [Suspect]

REACTIONS (5)
  - Headache [Recovered/Resolved]
  - Myalgia [Recovered/Resolved]
  - Hallucination [Recovered/Resolved]
  - Confusional state [Recovered/Resolved]
  - Off label use [Recovered/Resolved]
